FAERS Safety Report 15007363 (Version 4)
Quarter: 2019Q1

REPORT INFORMATION
  Report Type: Spontaneous
  Country: US (occurrence: US)
  Receive Date: 20180613
  Receipt Date: 20190214
  Transmission Date: 20190417
  Serious: No
  Sender: FDA-Public Use
  Company Number: US-PFIZER INC-2018237903

PATIENT
  Age: 43 Year
  Sex: Female
  Weight: 72.56 kg

DRUGS (9)
  1. AMPICILLIN SODIUM. [Suspect]
     Active Substance: AMPICILLIN SODIUM
     Dosage: UNK
  2. ADALIMUMAB [Suspect]
     Active Substance: ADALIMUMAB
     Dosage: UNK
  3. NORTRIPTYLINE [Suspect]
     Active Substance: NORTRIPTYLINE
     Dosage: UNK
  4. DULOXETINE HYDROCHLORIDE. [Suspect]
     Active Substance: DULOXETINE HYDROCHLORIDE
     Dosage: UNK
  5. DAPSONE. [Suspect]
     Active Substance: DAPSONE
     Dosage: UNK
  6. CELEBREX [Suspect]
     Active Substance: CELECOXIB
     Dosage: UNK
  7. CELECOXIB. [Suspect]
     Active Substance: CELECOXIB
     Dosage: UNK
     Dates: start: 20180608
  8. ASPIRIN [ACETYLSALICYLIC ACID] [Suspect]
     Active Substance: ASPIRIN
     Dosage: UNK
  9. HUMIRA [Suspect]
     Active Substance: ADALIMUMAB
     Dosage: UNK

REACTIONS (1)
  - Drug hypersensitivity [Unknown]
